FAERS Safety Report 20524020 (Version 2)
Quarter: 2025Q2

REPORT INFORMATION
  Report Type: Spontaneous
  Country: ES (occurrence: ES)
  Receive Date: 20220228
  Receipt Date: 20250526
  Transmission Date: 20250717
  Serious: Yes (Hospitalization, Other)
  Sender: AUROBINDO
  Company Number: ES-PFIZER INC-202101741839

PATIENT
  Age: 42 Year
  Sex: Female

DRUGS (12)
  1. VORICONAZOLE [Suspect]
     Active Substance: VORICONAZOLE
     Indication: Aspergillus infection
     Dosage: 800 MILLIGRAM, ONCE A DAY(LOADING DOSE FOR TWO DOSES)
     Route: 048
  2. VORICONAZOLE [Suspect]
     Active Substance: VORICONAZOLE
     Dosage: 400 MILLIGRAM, ONCE A DAY(200 MG, 2X/DAY)
     Route: 048
  3. VORICONAZOLE [Suspect]
     Active Substance: VORICONAZOLE
     Indication: Aspergillus infection
     Route: 065
  4. VORICONAZOLE [Suspect]
     Active Substance: VORICONAZOLE
     Route: 021
  5. VORICONAZOLE [Suspect]
     Active Substance: VORICONAZOLE
     Dosage: 100 MICROGRAM, EVERY WEEK(100 UG, WEEKLY)
     Route: 031
  6. VORICONAZOLE [Suspect]
     Active Substance: VORICONAZOLE
  7. PREDNISOLONE [Suspect]
     Active Substance: PREDNISOLONE
     Indication: Asthma
     Dosage: 40 MILLIGRAM, ONCE A DAY(20 MILLIGRAM, BID)
     Route: 042
  8. PREDNISOLONE [Suspect]
     Active Substance: PREDNISOLONE
     Dosage: 20 MILLIGRAM, ONCE A DAY (QD (24 HRS))
     Route: 042
  9. PREDNISOLONE [Suspect]
     Active Substance: PREDNISOLONE
     Indication: Asthma
     Route: 048
  10. PREDNISOLONE ACETATE [Concomitant]
     Active Substance: PREDNISOLONE ACETATE
     Indication: Visual impairment
     Route: 061
  11. CYCLOPENTOLATE [Concomitant]
     Active Substance: CYCLOPENTOLATE
     Indication: Visual impairment
     Dosage: UNK UNK, ONCE A DAY(UNK, 3X/DAY)
     Route: 065
  12. FOSCARNET [Concomitant]
     Active Substance: FOSCARNET
     Indication: Uveitis
     Route: 065

REACTIONS (6)
  - Aspergillus infection [Recovering/Resolving]
  - Mycotic endophthalmitis [Recovering/Resolving]
  - Uveitis [Recovering/Resolving]
  - Drug ineffective [Unknown]
  - Off label use [Unknown]
  - Product use issue [Unknown]
